FAERS Safety Report 9269323 (Version 2)
Quarter: 2013Q2

REPORT INFORMATION
  Report Type: Spontaneous
  Country: US (occurrence: US)
  Receive Date: 20130503
  Receipt Date: 20130527
  Transmission Date: 20140414
  Serious: No
  Sender: FDA-Public Use
  Company Number: US-PFIZER INC-2013136931

PATIENT
  Age: 78 Year
  Sex: Female
  Weight: 556 kg

DRUGS (9)
  1. LYRICA [Suspect]
     Indication: PAIN
     Dosage: 50 MG, 2X/DAY
     Route: 048
     Dates: start: 20101028, end: 2013
  2. LYRICA [Suspect]
     Indication: ARTHRITIS
     Dosage: 50 MG, 3X/DAY
     Route: 048
     Dates: start: 2013
  3. LISINOPRIL [Concomitant]
     Dosage: 10 MG, 1X/DAY
     Route: 048
  4. OXYCONTIN [Concomitant]
     Indication: PAIN
     Dosage: 10 MG, 2X/DAY
     Dates: start: 20130501
  5. METHADONE [Concomitant]
     Indication: PAIN
     Dosage: UNK
  6. OXYCODONE [Concomitant]
     Dosage: 5 MG, 2X/DAY
  7. OXYCODONE [Concomitant]
     Dosage: 5 MG, 4X/DAY
     Dates: start: 20130501
  8. CELEBREX [Concomitant]
     Dosage: 200 MG, 2X/DAY
     Route: 048
  9. CELEBREX [Concomitant]
     Dosage: 200 MG, 1X/DAY (PRN)
     Route: 048

REACTIONS (8)
  - Lip swelling [Recovering/Resolving]
  - Swollen tongue [Not Recovered/Not Resolved]
  - Oral discomfort [Recovering/Resolving]
  - Paraesthesia [Recovering/Resolving]
  - Pain [Unknown]
  - Depression [Not Recovered/Not Resolved]
  - Anxiety [Recovered/Resolved]
  - Muscle spasms [Unknown]
